FAERS Safety Report 10058066 (Version 1)
Quarter: 2014Q2

REPORT INFORMATION
  Report Type: Spontaneous
  Country: US (occurrence: US)
  Receive Date: 20140404
  Receipt Date: 20140404
  Transmission Date: 20141212
  Serious: Yes (Other)
  Sender: FDA-Public Use
  Company Number: US-PFIZER INC-2014092025

PATIENT
  Sex: Female

DRUGS (1)
  1. ADVIL [Suspect]
     Dosage: 3 DF, EVERY 4 HRS
     Dates: start: 20140330

REACTIONS (3)
  - Overdose [Unknown]
  - Haematemesis [Unknown]
  - Haematochezia [Unknown]
